FAERS Safety Report 10235916 (Version 1)
Quarter: 2014Q1

REPORT INFORMATION
  Report Type: Spontaneous
  Country: US (occurrence: None)
  Receive Date: 20140306
  Receipt Date: 20140306
  Transmission Date: 20141002
  Serious: Yes (Other)
  Sender: FDA-Public Use
  Company Number: 163-21880-13044205

PATIENT
  Age: 68 Year
  Sex: Female

DRUGS (9)
  1. REVLIMID(LENALIDOMIDE)(5 MILLIGRAM, CAPSULES) [Suspect]
     Indication: MYELOFIBROSIS
     Dosage: 5 MG, 2` IN 28 D, PO
     Route: 048
     Dates: start: 201212, end: 201302
  2. PREDNISONE(PREDNISONE)(UKNOWN) [Concomitant]
  3. GLIPIZIDE(GLIPIZIDE((UKNOWN) [Concomitant]
  4. PRAVASTATIN(PRAVASTATIN)(UKNONW) [Concomitant]
  5. AMLODIPINE(AMLODIPINE(UKNOWN) [Concomitant]
  6. FEXOFENADINE(FEXOFENADINE)(UKNOWN) [Concomitant]
  7. HYDROXYUREA(HYDROXYCARBAMIDE)(UKNOWN) [Concomitant]
  8. FERROUS SULFATE(FERROUS SULFATE)(UKNOWN) [Concomitant]
  9. FOLIC ACID(FOLIC ACID) [Concomitant]

REACTIONS (2)
  - Pancytopenia [None]
  - Contusion [None]
